FAERS Safety Report 22636137 (Version 14)
Quarter: 2024Q2

REPORT INFORMATION
  Report Type: Report from Study
  Country: RU (occurrence: RU)
  Receive Date: 20230623
  Receipt Date: 20240517
  Transmission Date: 20240716
  Serious: Yes (Other)
  Sender: FDA-Public Use
  Company Number: RU-002147023-NVSC2023RU132801

PATIENT
  Age: 0 Year
  Sex: Female
  Weight: 7.8 kg

DRUGS (22)
  1. ZOLGENSMA [Suspect]
     Active Substance: ONASEMNOGENE ABEPARVOVEC-XIOI
     Indication: Spinal muscular atrophy
     Dosage: 44 ML, (SINGLE DOSE)
     Route: 042
     Dates: start: 20230425, end: 20230425
  2. PREDNISOLONE [Concomitant]
     Active Substance: PREDNISOLONE
     Indication: Product used for unknown indication
     Dosage: 7.8 MG, QD (ONCE DAILY IN THE MORNING)
     Route: 048
     Dates: start: 20230424, end: 20230427
  3. PREDNISOLONE [Concomitant]
     Active Substance: PREDNISOLONE
     Dosage: 7.8 MG, QD ( IN THE MORNING, CONTINUOUSLY) (AT 10:00 A.M; INTERPT ON AP 29, 2023, FROM 00:00, DOSAGE
     Route: 048
     Dates: start: 20230426, end: 20230428
  4. PREDNISOLONE [Concomitant]
     Active Substance: PREDNISOLONE
     Dosage: 2 MG/KG, QD
     Route: 065
     Dates: start: 20230428
  5. PREDNISOLONE [Concomitant]
     Active Substance: PREDNISOLONE
     Dosage: 1 MG/KG, QD
     Route: 048
     Dates: start: 20230519
  6. PREDNISOLONE [Concomitant]
     Active Substance: PREDNISOLONE
     Dosage: 7.8 MG, QD (ONCE DAILY IN THE MORNING)
     Route: 048
     Dates: start: 20230522
  7. OMEPRAZOLE [Concomitant]
     Active Substance: DONEPEZIL HYDROCHLORIDE\OMEPRAZOLE\OMEPRAZOLE MAGNESIUM
     Indication: Product used for unknown indication
     Dosage: 10 MG, QD (IN THE EVENING)
     Route: 048
     Dates: start: 20230426, end: 20230530
  8. ONDANSETRON [Concomitant]
     Active Substance: ONDANSETRON
     Indication: Product used for unknown indication
     Dosage: 0.4 ML, ONCE/SINGLE (SINGLE DOSING (9:00 A.M.))
     Route: 042
     Dates: start: 20230428, end: 20230428
  9. HEPARIN SODIUM [Concomitant]
     Active Substance: HEPARIN SODIUM
     Indication: Product used for unknown indication
     Dosage: 0.02 ML (FOR 4  HOURS, 6 TIMES A DAY (AT 00:00, 4:00 A.M., 8:00 A.M., 12:00 P.M., 4:00 P.M., 8:00 P.
     Route: 042
     Dates: start: 20230526, end: 20230528
  10. METHYLPREDNISOLONE [Concomitant]
     Active Substance: METHYLPREDNISOLONE
     Indication: Product used for unknown indication
     Dosage: 10 MG/KG, QD
     Route: 065
     Dates: start: 20230506
  11. METHYLPREDNISOLONE [Concomitant]
     Active Substance: METHYLPREDNISOLONE
     Dosage: 80 MG 50 ML (WITH SODIUM CHLORIDE) ( FOR 30 MINUTES, ONCE DAILY IN THE MORNING FOR 3 DAYS)
     Route: 042
     Dates: start: 20230506, end: 20230508
  12. METHYLPREDNISOLONE [Concomitant]
     Active Substance: METHYLPREDNISOLONE
     Dosage: 30 MG/KG, QD
     Route: 065
  13. METHYLPREDNISOLONE [Concomitant]
     Active Substance: METHYLPREDNISOLONE
     Dosage: 5 MG/KG
     Route: 065
     Dates: start: 20230509, end: 20230511
  14. METHYLPREDNISOLONE [Concomitant]
     Active Substance: METHYLPREDNISOLONE
     Dosage: 2 MG/KG, QD
     Route: 048
     Dates: start: 20230512
  15. METHYLPREDNISOLONE [Concomitant]
     Active Substance: METHYLPREDNISOLONE
     Dosage: 1 DOSAGE FORM, QD, 230 MG 100 ML (WITH SODIUM CHLORIDE) (ONCE DAILY IN THE AFTERNOON, FOR 3 DAYS
     Route: 042
     Dates: start: 20230519, end: 20230521
  16. METHYLPREDNISOLONE [Concomitant]
     Active Substance: METHYLPREDNISOLONE
     Indication: Product used for unknown indication
     Dosage: 5 MG/KG, QD
     Route: 065
     Dates: start: 20230509
  17. METHYLPREDNISOLONE [Concomitant]
     Active Substance: METHYLPREDNISOLONE
     Dosage: 2 MG/KG, QD
     Route: 048
     Dates: start: 20230512
  18. SODIUM CHLORIDE [Concomitant]
     Active Substance: SODIUM CHLORIDE
     Indication: Product used for unknown indication
     Dosage: 1 DOSAGE FORM, QD (150 MG 50 ML (WITH METHYLPREDNISOLONE) (INTRAVENOUS INFUSION FOR 30 MINUTES, ONCE
     Route: 042
     Dates: start: 20230501, end: 20230505
  19. SODIUM CHLORIDE [Concomitant]
     Active Substance: SODIUM CHLORIDE
     Dosage: 1 DOSAGE FORM, QD (80 MG 50 ML (WITH METHYLPREDNISOLONE) (INTRAVENOUS INFUSION FOR 30 MINUTES, ONCE
     Route: 065
     Dates: start: 20230506, end: 20230508
  20. ALGELDRATE [Concomitant]
     Active Substance: ALGELDRATE
     Indication: Product used for unknown indication
     Dosage: 0.0147 VIAL (3 TIMES A DAY (IN THE MORNING, AFTERNOON, EVENING, DILUTED WITH WATER 1:1 AFTER MEALS)
     Route: 048
     Dates: start: 20230524, end: 20230530
  21. URSODIOL [Concomitant]
     Active Substance: URSODIOL
     Indication: Product used for unknown indication
     Dosage: 125 MG, QD (IN THE EVENING)
     Route: 048
     Dates: start: 20230516, end: 20230530
  22. DEXTROSE [Concomitant]
     Active Substance: DEXTROSE\DEXTROSE MONOHYDRATE
     Indication: Product used for unknown indication
     Dosage: 250 ML, QD (FOR 8 HOURS, ONCE DAILY AT NIGHT)
     Route: 042
     Dates: start: 20230519, end: 20230521

REACTIONS (16)
  - Oesophageal haemorrhage [Unknown]
  - Bradycardia [Unknown]
  - Hepatic cytolysis [Recovering/Resolving]
  - Transaminases increased [Unknown]
  - Muscular weakness [Recovering/Resolving]
  - Skin turgor decreased [Recovering/Resolving]
  - Oesophagitis [Unknown]
  - Pallor [Unknown]
  - Nutritional condition abnormal [Unknown]
  - Fat tissue decreased [Unknown]
  - Weight decreased [Recovering/Resolving]
  - Decreased appetite [Recovering/Resolving]
  - Dry skin [Unknown]
  - Urticaria [Recovering/Resolving]
  - Pyrexia [Recovering/Resolving]
  - Vomiting [Recovering/Resolving]

NARRATIVE: CASE EVENT DATE: 20230428
